FAERS Safety Report 18531510 (Version 1)
Quarter: 2020Q4

REPORT INFORMATION
  Report Type: Report from Study
  Country: None (occurrence: BG)
  Receive Date: 20201122
  Receipt Date: 20201122
  Transmission Date: 20210114
  Serious: Yes (Death, Hospitalization, Other)
  Sender: FDA-Public Use
  Company Number: BG-ABBVIE-20K-022-3660616-00

PATIENT
  Age: 68 Year
  Sex: Female

DRUGS (1)
  1. HUMIRA [Suspect]
     Active Substance: ADALIMUMAB
     Indication: PSORIATIC ARTHROPATHY
     Route: 058
     Dates: start: 201509

REACTIONS (7)
  - Death [Fatal]
  - Surgery [Unknown]
  - Skin discolouration [Unknown]
  - Peripheral swelling [Unknown]
  - Post procedural complication [Unknown]
  - Limb discomfort [Unknown]
  - Nosocomial infection [Unknown]

NARRATIVE: CASE EVENT DATE: 2020
